FAERS Safety Report 7010521-3 (Version None)
Quarter: 2010Q3

REPORT INFORMATION
  Report Type: 
  Country: None (occurrence: None)
  Receive Date: 20100923
  Receipt Date: 20100914
  Transmission Date: 20110219
  Serious: Yes (Hospitalization)
  Sender: FDA-Public Use
  Company Number: CN-SANOFI-AVENTIS-2010SA054926

PATIENT
  Sex: Female
  Weight: 80 kg

DRUGS (4)
  1. PLAVIX [Suspect]
     Indication: MYOCARDIAL INFARCTION
     Route: 048
     Dates: start: 20100705, end: 20100705
  2. PLAVIX [Suspect]
     Route: 048
     Dates: start: 20100706, end: 20100712
  3. ASPIRIN [Concomitant]
     Indication: MYOCARDIAL INFARCTION
     Route: 048
     Dates: start: 20100705, end: 20100712
  4. HEPARIN SODIUM [Concomitant]
     Indication: MYOCARDIAL INFARCTION
     Route: 065
     Dates: start: 20100705, end: 20100709

REACTIONS (8)
  - CEREBRAL HAEMORRHAGE [None]
  - CEREBRAL INFARCTION [None]
  - COAGULOPATHY [None]
  - COMA [None]
  - GINGIVAL BLEEDING [None]
  - HEADACHE [None]
  - OCCULT BLOOD [None]
  - PURPURA [None]
